FAERS Safety Report 15100999 (Version 2)
Quarter: 2018Q3

REPORT INFORMATION
  Report Type: Spontaneous
  Country: US (occurrence: US)
  Receive Date: 20180703
  Receipt Date: 20180713
  Transmission Date: 20181010
  Serious: No
  Sender: FDA-Public Use
  Company Number: US-BEH-2018092231

PATIENT
  Age: 29 Year
  Sex: Female

DRUGS (2)
  1. PRIVIGEN [Suspect]
     Active Substance: HUMAN IMMUNOGLOBULIN G
     Dosage: UNK
     Route: 042
     Dates: start: 20180701
  2. PRIVIGEN [Suspect]
     Active Substance: HUMAN IMMUNOGLOBULIN G
     Indication: MULTIPLE SCLEROSIS
     Dosage: 30 G, DAILY FOR 2 DAYS EVERY WEEK FOR 8 WEEKS
     Route: 042
     Dates: start: 20180619, end: 20180620

REACTIONS (3)
  - Headache [Unknown]
  - Pain [Unknown]
  - Eye pain [Unknown]

NARRATIVE: CASE EVENT DATE: 20180622
